FAERS Safety Report 14843749 (Version 1)
Quarter: 2018Q2

REPORT INFORMATION
  Report Type: Spontaneous
  Country: RU (occurrence: RU)
  Receive Date: 20180503
  Receipt Date: 20180503
  Transmission Date: 20180711
  Serious: Yes (Death, Other)
  Sender: FDA-Public Use
  Company Number: RU-BAYER-2018-079497

PATIENT
  Age: 46 Year
  Sex: Male

DRUGS (3)
  1. EVEROLIMUS. [Suspect]
     Active Substance: EVEROLIMUS
     Dosage: 10 MG, QD
     Dates: start: 201602, end: 201604
  2. DEXAMETHASONE. [Concomitant]
     Active Substance: DEXAMETHASONE
  3. NEXAVAR [Suspect]
     Active Substance: SORAFENIB
     Indication: CLEAR CELL RENAL CELL CARCINOMA
     Dosage: 800 MG, QD
     Dates: start: 201510, end: 201512

REACTIONS (6)
  - Fatigue [None]
  - Rash [None]
  - Anaemia [None]
  - Palmar-plantar erythrodysaesthesia syndrome [None]
  - Clear cell renal cell carcinoma [None]
  - Stomatitis [None]
